FAERS Safety Report 9684490 (Version 1)
Quarter: 2013Q4

REPORT INFORMATION
  Report Type: Report from Study
  Country: US (occurrence: US)
  Receive Date: 20131112
  Receipt Date: 20131112
  Transmission Date: 20140711
  Serious: Yes (Hospitalization, Other)
  Sender: FDA-Public Use
  Company Number: US-ABBVIE-13P-163-1167066-00

PATIENT
  Age: 42 Year
  Sex: Male

DRUGS (15)
  1. VALPROIC ACID [Suspect]
     Indication: SARCOMA
     Route: 048
     Dates: start: 20120903, end: 20130628
  2. VALPROIC ACID [Suspect]
     Route: 048
     Dates: start: 20130624, end: 20130629
  3. VALPROIC ACID [Suspect]
     Dosage: AT BEDTIME
     Route: 048
     Dates: start: 20130624, end: 20130629
  4. TAXOTERE [Concomitant]
     Indication: PRODUCT USED FOR UNKNOWN INDICATION
     Dates: start: 20120907, end: 20130208
  5. BEVACIZUMAB [Concomitant]
     Indication: LEIOMYOSARCOMA
     Route: 042
     Dates: start: 20120907, end: 20130624
  6. GEMCITABINE HYDROCHLORIDE [Concomitant]
     Indication: PRODUCT USED FOR UNKNOWN INDICATION
     Dates: start: 20120907, end: 20130208
  7. HYDROMORPHONE [Concomitant]
     Indication: PRODUCT USED FOR UNKNOWN INDICATION
     Dates: start: 20130528
  8. ONDANSETRON [Concomitant]
     Indication: PRODUCT USED FOR UNKNOWN INDICATION
  9. LISINOPRIL [Concomitant]
     Indication: PRODUCT USED FOR UNKNOWN INDICATION
  10. ACETAMINOPHEN [Concomitant]
     Indication: PRODUCT USED FOR UNKNOWN INDICATION
  11. GABAPENTIN [Concomitant]
     Indication: PRODUCT USED FOR UNKNOWN INDICATION
  12. NAPROXEN [Concomitant]
     Indication: PRODUCT USED FOR UNKNOWN INDICATION
  13. ZOLPIDEM TARTRATE [Concomitant]
     Indication: PRODUCT USED FOR UNKNOWN INDICATION
  14. LIDOCAINE [Concomitant]
     Indication: PRODUCT USED FOR UNKNOWN INDICATION
  15. DEXAMETHASONE [Concomitant]
     Indication: PRODUCT USED FOR UNKNOWN INDICATION

REACTIONS (3)
  - Neutrophil count decreased [Unknown]
  - Flank pain [Unknown]
  - Myelodysplastic syndrome [Unknown]
